FAERS Safety Report 20674766 (Version 1)
Quarter: 2022Q2

REPORT INFORMATION
  Report Type: Spontaneous
  Country: US (occurrence: None)
  Receive Date: 20220404
  Receipt Date: 20220404
  Transmission Date: 20220720
  Serious: Yes (Other)
  Sender: FDA-Public Use
  Company Number: None

PATIENT
  Age: 57 Year
  Sex: Male

DRUGS (2)
  1. AMBRISENTAN [Suspect]
     Active Substance: AMBRISENTAN
     Indication: Pulmonary arterial hypertension
     Dosage: FREQUENCY : DAILY;?
     Route: 048
  2. TADALAFIL [Concomitant]
     Active Substance: TADALAFIL

REACTIONS (6)
  - Pruritus [None]
  - Chronic kidney disease [None]
  - Pulmonary capillary haemangiomatosis [None]
  - Dyspnoea exertional [None]
  - Fatigue [None]
  - Product substitution issue [None]

NARRATIVE: CASE EVENT DATE: 20220404
